FAERS Safety Report 9508313 (Version 1)
Quarter: 2013Q1

REPORT INFORMATION
  Report Type: Spontaneous
  Country: US (occurrence: None)
  Receive Date: 20130305
  Receipt Date: 20130305
  Transmission Date: 20140127
  Serious: Yes (Hospitalization)
  Sender: FDA-Public Use
  Company Number: 163-21880-12021204

PATIENT
  Age: 57 Year
  Sex: Female
  Weight: 75.3 kg

DRUGS (7)
  1. REVLIMID (LENALIDOMIDE) [Suspect]
     Indication: PLASMA CELL MYELOMA
     Dosage: DAYS 1-14
     Route: 048
     Dates: start: 201006
  2. DECADRON (DEXAMETHASONE) [Concomitant]
  3. KEPPRA (LEVETIRACETAM) [Concomitant]
  4. CALCIUM CARBONATE (CALCIUM CARBONATE) [Concomitant]
  5. MVI (MVI) [Concomitant]
  6. VALTREX (VALACICLOVIR HYDROCHLORIDE) [Concomitant]
  7. NEXIUM [Concomitant]

REACTIONS (2)
  - Plasmacytoma [None]
  - Disease progression [None]
